FAERS Safety Report 23066458 (Version 17)
Quarter: 2025Q4

REPORT INFORMATION
  Report Type: Report from Study
  Country: AR (occurrence: AR)
  Receive Date: 20231015
  Receipt Date: 20251120
  Transmission Date: 20260117
  Serious: Yes (Hospitalization, Other)
  Sender: NOVARTIS
  Company Number: AR-002147023-NVSC2023AR221535

PATIENT
  Sex: Female

DRUGS (12)
  1. COSENTYX [Suspect]
     Active Substance: SECUKINUMAB
     Indication: Hidradenitis
     Dosage: 300 MG, UNKNOWN
     Route: 058
     Dates: start: 20230823
  2. COSENTYX [Suspect]
     Active Substance: SECUKINUMAB
     Dosage: 300 MG, QW (AUTOINJECTOR OF 300MG), THE FOURTH WEEK SHE WOULD REST FOR 15 DAYS
     Route: 065
  3. COSENTYX [Suspect]
     Active Substance: SECUKINUMAB
     Dosage: 300 MG, EVERY 15 DAYS
     Route: 065
  4. COSENTYX [Suspect]
     Active Substance: SECUKINUMAB
     Dosage: 300 MG, QMO
     Route: 058
  5. COSENTYX [Suspect]
     Active Substance: SECUKINUMAB
     Dosage: 600 MG, Q2W
     Route: 058
     Dates: start: 20230911
  6. COSENTYX [Suspect]
     Active Substance: SECUKINUMAB
     Dosage: 300 MG, Q2W
     Route: 058
  7. COSENTYX [Suspect]
     Active Substance: SECUKINUMAB
     Dosage: UNK
     Route: 058
  8. COSENTYX [Suspect]
     Active Substance: SECUKINUMAB
     Dosage: 300 MG, EVERY 15 DAYS
     Route: 065
  9. COSENTYX [Suspect]
     Active Substance: SECUKINUMAB
     Dosage: 600 MG, QMO
     Route: 058
  10. METFORMIN [Concomitant]
     Active Substance: METFORMIN HYDROCHLORIDE
     Indication: Diabetes mellitus
     Dosage: 500 MG, QD
     Route: 065
     Dates: start: 2016
  11. METFORMIN [Concomitant]
     Active Substance: METFORMIN HYDROCHLORIDE
     Dosage: 850
     Route: 065
  12. LOSARTAN [Concomitant]
     Active Substance: LOSARTAN
     Indication: Hypertension
     Dosage: 100 MG
     Route: 065

REACTIONS (23)
  - Fistula [Unknown]
  - Pericardial effusion [Unknown]
  - Presbyopia [Unknown]
  - Hidradenitis [Recovering/Resolving]
  - Condition aggravated [Unknown]
  - Discharge [Unknown]
  - Pain [Recovered/Resolved]
  - Blister [Unknown]
  - Influenza [Recovered/Resolved]
  - Viral infection [Recovered/Resolved]
  - Cough [Recovered/Resolved]
  - Tuberculin test positive [Unknown]
  - Illness [Unknown]
  - Incorrect dose administered [Unknown]
  - Inappropriate schedule of product administration [Unknown]
  - Thyroid calcification [Unknown]
  - Atelectasis [Unknown]
  - Pulmonary granuloma [Unknown]
  - Pulmonary mass [Unknown]
  - Degenerative bone disease [Unknown]
  - Intervertebral disc space narrowing [Unknown]
  - Osteosclerosis [Unknown]
  - Thyroid gland scan abnormal [Unknown]

NARRATIVE: CASE EVENT DATE: 20250101
